FAERS Safety Report 15305343 (Version 1)
Quarter: 2018Q3

REPORT INFORMATION
  Report Type: Report from Study
  Country: None (occurrence: US)
  Receive Date: 20180822
  Receipt Date: 20180822
  Transmission Date: 20181010
  Serious: Yes (Other)
  Sender: FDA-Public Use
  Company Number: US-ABBVIE-18K-163-2452919-00

PATIENT
  Sex: Female

DRUGS (2)
  1. ORENCIA [Suspect]
     Active Substance: ABATACEPT
     Indication: PRODUCT USED FOR UNKNOWN INDICATION
     Route: 065
  2. HUMIRA [Suspect]
     Active Substance: ADALIMUMAB
     Indication: RHEUMATOID ARTHRITIS
     Route: 058
     Dates: end: 2016

REACTIONS (9)
  - Autoimmune hepatitis [Unknown]
  - Diabetes mellitus inadequate control [Unknown]
  - Thyroid disorder [Unknown]
  - Rash papular [Unknown]
  - Hypertension [Unknown]
  - Drug ineffective [Unknown]
  - Depression [Unknown]
  - Arthralgia [Unknown]
  - Drug effect incomplete [Unknown]
